FAERS Safety Report 9034380 (Version 1)
Quarter: 2013Q1

REPORT INFORMATION
  Report Type: Spontaneous
  Country: US (occurrence: None)
  Receive Date: 20130115
  Receipt Date: 20130115
  Transmission Date: 20140127
  Serious: Yes (Death)
  Sender: FDA-Public Use
  Company Number: ACO_33694_2013

PATIENT
  Age: 74 Year
  Sex: Female

DRUGS (7)
  1. AMPYRA [Suspect]
     Dosage: 10 MG,  BID,  ORAL?07/--/2010 TO UNK
     Route: 048
     Dates: start: 201007
  2. COPAXONE (GLATIRAMER ACETATE) [Concomitant]
  3. COZAAR (LOSARTAN POTASSIUM) [Concomitant]
  4. ZOLOFT (SERTRALINE HYDROCHLORIDE) [Concomitant]
  5. LORAZEPAM (LORAZEPAM) [Concomitant]
  6. BACLOFEN (BACLOFEN) [Concomitant]
  7. GALANTAMINE (GALANTAMINE HYDROBROMIDE) [Concomitant]

REACTIONS (1)
  - Death [None]
